FAERS Safety Report 4848788-X (Version None)
Quarter: 2005Q4

REPORT INFORMATION
  Report Type: 
  Country: None (occurrence: None)
  Receive Date: 20051208
  Receipt Date: 20051104
  Transmission Date: 20060501
  Serious: Yes (Hospitalization)
  Sender: FDA-Public Use
  Company Number: DE-ABBOTT-05P-062-0316583-00

PATIENT
  Sex: Female
  Weight: 45 kg

DRUGS (4)
  1. HUMIRA [Suspect]
     Indication: RHEUMATOID ARTHRITIS
     Route: 058
     Dates: start: 20031211
  2. HUMIRA [Suspect]
  3. LEFLUNOMIDE [Concomitant]
     Indication: RHEUMATOID ARTHRITIS
  4. HUMIRA (COMMERCIAL) [Concomitant]
     Indication: RHEUMATOID ARTHRITIS
     Route: 058
     Dates: start: 20031009

REACTIONS (7)
  - BLOOD PRESSURE INCREASED [None]
  - CAROTID ARTERY ANEURYSM [None]
  - CEREBRAL INFARCTION [None]
  - DIZZINESS [None]
  - EPILEPSY [None]
  - SUBARACHNOID HAEMORRHAGE [None]
  - VOMITING [None]
